FAERS Safety Report 6085620-3 (Version None)
Quarter: 2009Q1

REPORT INFORMATION
  Report Type: 
  Country: None (occurrence: None)
  Receive Date: 20090220
  Receipt Date: 20090212
  Transmission Date: 20090719
  Serious: Yes (Other)
  Sender: FDA-Public Use
  Company Number: ES-ABBOTT-09P-144-0503109-00

PATIENT
  Age: 78 Year
  Sex: Female

DRUGS (2)
  1. VALPROIC ACID [Suspect]
     Indication: SYNCOPE
     Dates: start: 20080201
  2. DONEPEZIL HCL [Concomitant]
     Indication: DEMENTIA ALZHEIMER'S TYPE
     Dates: start: 20060101

REACTIONS (6)
  - COGNITIVE DISORDER [None]
  - FALL [None]
  - INCONTINENCE [None]
  - MEMORY IMPAIRMENT [None]
  - PARKINSONISM [None]
  - SPEECH DISORDER [None]
